FAERS Safety Report 8046864-4 (Version None)
Quarter: 2012Q1

REPORT INFORMATION
  Report Type: 
  Country: None (occurrence: None)
  Receive Date: 20120116
  Receipt Date: 20120105
  Transmission Date: 20120608
  Serious: Yes (Hospitalization, Other)
  Sender: FDA-Public Use
  Company Number: US-BAYER-2011-027515

PATIENT
  Sex: Female

DRUGS (12)
  1. SERTRALINE HYDROCHLORIDE [Concomitant]
     Dosage: 50MG - 100MG ONCE A DAY
     Dates: start: 20090401
  2. ZETIA [Concomitant]
     Indication: HYPERTRIGLYCERIDAEMIA
     Dosage: 10 MG, QD
     Dates: start: 20090516, end: 20090629
  3. DIAZEPAM [Concomitant]
  4. FENOFIBRATE [Concomitant]
     Indication: HYPERTRIGLYCERIDAEMIA
     Dosage: 160 MG, QD
     Dates: start: 20090629
  5. ANTIVERT [Concomitant]
     Dosage: 12.5 MG, TID
     Dates: start: 20090701
  6. YAZ [Suspect]
     Dosage: UNK
     Route: 048
     Dates: start: 20070101, end: 20100101
  7. RANITIDINE [Concomitant]
     Dosage: 300 MG, QD
     Dates: start: 20091101
  8. AZITHROMYCIN [Concomitant]
     Dosage: UNK
     Dates: start: 20090903
  9. VICODIN [Concomitant]
     Dosage: 500MG-5MG EVERY 4 HOURS
     Dates: start: 20090601
  10. EXCEDRIN (MIGRAINE) [Concomitant]
  11. NIASPAN [Concomitant]
     Indication: HYPERLIPIDAEMIA
  12. MAGNESIUM HYDROXIDE TAB [Concomitant]

REACTIONS (9)
  - ANXIETY [None]
  - INJURY [None]
  - ANHEDONIA [None]
  - JAUNDICE [None]
  - CHOLELITHIASIS [None]
  - BILE DUCT STONE [None]
  - PAIN [None]
  - GENERAL PHYSICAL HEALTH DETERIORATION [None]
  - EMOTIONAL DISTRESS [None]
